APPROVED DRUG PRODUCT: DIHYDROERGOTAMINE MESYLATE
Active Ingredient: DIHYDROERGOTAMINE MESYLATE
Strength: 0.5MG/SPRAY
Dosage Form/Route: SPRAY, METERED;NASAL
Application: A214105 | Product #001
Applicant: AMNEAL PHARMACEUTICALS LLC
Approved: Jan 4, 2022 | RLD: No | RS: No | Type: DISCN